FAERS Safety Report 6949376-1 (Version None)
Quarter: 2010Q3

REPORT INFORMATION
  Report Type: 
  Country: None (occurrence: None)
  Receive Date: 20100828
  Receipt Date: 20091217
  Transmission Date: 20110219
  Serious: No
  Sender: FDA-Public Use
  Company Number: US-ABBOTT-09P-163-0616015-00

PATIENT
  Sex: Male

DRUGS (4)
  1. NIASPAN [Suspect]
     Indication: BLOOD CHOLESTEROL INCREASED
     Dates: start: 20090801
  2. LISINOPRIL [Concomitant]
     Indication: OEDEMA PERIPHERAL
  3. FUROSEMIDE [Concomitant]
     Indication: OEDEMA PERIPHERAL
  4. PRAVASTATIN [Concomitant]
     Indication: BLOOD CHOLESTEROL INCREASED

REACTIONS (3)
  - DYSPEPSIA [None]
  - FLUSHING [None]
  - SKIN BURNING SENSATION [None]
